FAERS Safety Report 16068591 (Version 1)
Quarter: 2019Q1

REPORT INFORMATION
  Report Type: Spontaneous
  Country: US (occurrence: US)
  Receive Date: 20190313
  Receipt Date: 20190313
  Transmission Date: 20190418
  Serious: No
  Sender: FDA-Public Use
  Company Number: US-SUNOVION-2019SUN000916

PATIENT
  Sex: Female
  Weight: 86.17 kg

DRUGS (6)
  1. LATUDA [Suspect]
     Active Substance: LURASIDONE HYDROCHLORIDE
     Dosage: 20 MG, QD
     Route: 048
  2. ABILIFY [Concomitant]
     Active Substance: ARIPIPRAZOLE
     Dosage: UNK
  3. HEMP [Concomitant]
     Active Substance: HEMP
     Indication: MUSCULOSKELETAL PAIN
     Dosage: UNK
  4. LATUDA [Suspect]
     Active Substance: LURASIDONE HYDROCHLORIDE
     Dosage: 40 MG, QD
     Route: 048
  5. HEMP [Concomitant]
     Active Substance: HEMP
     Indication: NECK PAIN
  6. LATUDA [Suspect]
     Active Substance: LURASIDONE HYDROCHLORIDE
     Indication: SCHIZOAFFECTIVE DISORDER
     Dosage: 60 MG, QD
     Route: 048

REACTIONS (7)
  - Psychomotor hyperactivity [Not Recovered/Not Resolved]
  - Off label use [Unknown]
  - Dyskinesia [Recovered/Resolved]
  - Restless legs syndrome [Not Recovered/Not Resolved]
  - Muscle tightness [Not Recovered/Not Resolved]
  - Dizziness [Not Recovered/Not Resolved]
  - Logorrhoea [Not Recovered/Not Resolved]
